FAERS Safety Report 22642683 (Version 4)
Quarter: 2025Q2

REPORT INFORMATION
  Report Type: Spontaneous
  Country: ES (occurrence: ES)
  Receive Date: 20230627
  Receipt Date: 20250521
  Transmission Date: 20250716
  Serious: Yes (Other)
  Sender: CELLTRION
  Company Number: ES-CELLTRION INC.-2023ES003842

PATIENT

DRUGS (3)
  1. ADALIMUMAB [Suspect]
     Active Substance: ADALIMUMAB
     Indication: Chorioretinopathy
     Route: 065
  2. ADALIMUMAB [Suspect]
     Active Substance: ADALIMUMAB
     Indication: Hypothyroidism
     Route: 065
  3. ADALIMUMAB [Suspect]
     Active Substance: ADALIMUMAB
     Indication: Central serous chorioretinopathy

REACTIONS (7)
  - Acute febrile neutrophilic dermatosis [Recovering/Resolving]
  - Autoimmune disorder [Recovering/Resolving]
  - C-reactive protein increased [Unknown]
  - Lymphopenia [Unknown]
  - Neutrophilic dermatosis [Recovering/Resolving]
  - Off label use [Unknown]
  - Off label use [Unknown]
